FAERS Safety Report 25903248 (Version 2)
Quarter: 2025Q4

REPORT INFORMATION
  Report Type: Spontaneous
  Country: JP (occurrence: JP)
  Receive Date: 20251009
  Receipt Date: 20251029
  Transmission Date: 20260117
  Serious: Yes (Death, Other)
  Sender: MERCK SHARP & DOHME LLC
  Company Number: JP-MSD-M2025-01446

PATIENT
  Age: 72 Year

DRUGS (2)
  1. KEYTRUDA [Suspect]
     Active Substance: PEMBROLIZUMAB
     Indication: Transitional cell carcinoma
     Route: 041
  2. ENFORTUMAB VEDOTIN [Suspect]
     Active Substance: ENFORTUMAB VEDOTIN
     Route: 065

REACTIONS (2)
  - Myelosuppression [Fatal]
  - Condition aggravated [Unknown]

NARRATIVE: CASE EVENT DATE: 20250101
